FAERS Safety Report 4451612-0 (Version None)
Quarter: 2004Q3

REPORT INFORMATION
  Report Type: 
  Country: None (occurrence: None)
  Receive Date: 20040915
  Receipt Date: 20040901
  Transmission Date: 20050211
  Serious: Yes (Life-Threatening, Hospitalization)
  Sender: FDA-Public Use
  Company Number: 2004061366

PATIENT
  Age: 55 Year
  Sex: Female

DRUGS (9)
  1. GEODON [Suspect]
     Indication: MOOD SWINGS
     Dosage: 80 MG, 2 IN 1 D, ORAL
     Route: 048
     Dates: start: 20040127, end: 20040629
  2. OXCARBAZEPINE (OXCARBAZEPINE) [Concomitant]
  3. LAMOTRIGINE [Concomitant]
  4. VENLAFAXINE HCL [Concomitant]
  5. AMANTADINE (AMANTADINE) [Concomitant]
  6. LANSOPRAZOLE [Concomitant]
  7. CETIRIZINE HCL [Concomitant]
  8. ATORVASTATIN (ATORVASTATIN) [Concomitant]
  9. LEVOTHYROXINE SODIUM [Concomitant]

REACTIONS (1)
  - SUICIDAL IDEATION [None]
